FAERS Safety Report 7907414-3 (Version None)
Quarter: 2011Q4

REPORT INFORMATION
  Report Type: 
  Country: None (occurrence: None)
  Receive Date: 20111110
  Receipt Date: 20111028
  Transmission Date: 20120403
  Serious: Yes (Death)
  Sender: FDA-Public Use
  Company Number: IL-MYLANLABS-2011S1022780

PATIENT
  Age: 33 Year
  Sex: Female

DRUGS (6)
  1. CARBOPLATIN [Suspect]
     Indication: BREAST CANCER METASTATIC
     Route: 065
  2. GEMCITABINE [Suspect]
     Indication: BREAST CANCER METASTATIC
     Route: 065
  3. TRASTUZUMAB [Suspect]
     Indication: BREAST CANCER METASTATIC
     Route: 065
  4. FENTANYL [Concomitant]
     Route: 061
  5. ALDACTONE [Concomitant]
     Route: 065
  6. FUROSEMIDE [Concomitant]
     Route: 065

REACTIONS (2)
  - HEPATIC CIRRHOSIS [None]
  - HEPATIC FAILURE [None]
